FAERS Safety Report 26080371 (Version 1)
Quarter: 2025Q4

REPORT INFORMATION
  Report Type: Spontaneous
  Country: US (occurrence: None)
  Receive Date: 20251124
  Receipt Date: 20251124
  Transmission Date: 20260117
  Serious: No
  Sender: ENCUBE ETHICALS PVT. LTD.
  Company Number: US-Encube-002608

PATIENT
  Sex: Male

DRUGS (1)
  1. FLUOCINONIDE [Suspect]
     Active Substance: FLUOCINONIDE
     Indication: Product used for unknown indication
     Dosage: SOLUTION HAD BEEN USING FOR ABOUT SIX MONTHS

REACTIONS (1)
  - Dermatitis acneiform [Unknown]
